FAERS Safety Report 6128944-3 (Version None)
Quarter: 2009Q1

REPORT INFORMATION
  Report Type: 
  Country: None (occurrence: None)
  Receive Date: 20090324
  Receipt Date: 20090312
  Transmission Date: 20090719
  Serious: Yes (Other)
  Sender: FDA-Public Use
  Company Number: PHHY2009CA09281

PATIENT
  Sex: Male

DRUGS (1)
  1. GENTEAL (NVO) [Suspect]
     Indication: CATARACT
     Dosage: EVERY HOUR WHILE AWAKE
     Route: 061

REACTIONS (1)
  - ABNORMAL SENSATION IN EYE [None]
